FAERS Safety Report 4572722-3 (Version None)
Quarter: 2005Q1

REPORT INFORMATION
  Report Type: 
  Country: None (occurrence: None)
  Receive Date: 20050118
  Receipt Date: 20040903
  Transmission Date: 20050727
  Serious: Yes (Other)
  Sender: FDA-Public Use
  Company Number: HQWYE858807SEP04

PATIENT
  Age: 53 Year
  Sex: Female

DRUGS (4)
  1. PREMPRO [Suspect]
  2. MEDROXYPROGESTERONE ACETATE [Suspect]
  3. PREMARIN [Suspect]
  4. PROVERA [Suspect]

REACTIONS (1)
  - DEEP VEIN THROMBOSIS [None]
